FAERS Safety Report 4702477-0 (Version None)
Quarter: 2005Q2

REPORT INFORMATION
  Report Type: 
  Country: None (occurrence: None)
  Receive Date: 20050624
  Receipt Date: 20050614
  Transmission Date: 20051028
  Serious: Yes (Death, Hospitalization, Other)
  Sender: FDA-Public Use
  Company Number: WAES 0410USA00649

PATIENT
  Age: 77 Year
  Sex: Female

DRUGS (3)
  1. COZAAR [Suspect]
     Indication: HYPERTENSION
     Dosage: 50 MG/DAILY, PO
     Route: 048
     Dates: start: 20011201, end: 20031006
  2. CEREKINON [Concomitant]
  3. MARZULENE-S [Concomitant]

REACTIONS (9)
  - BLOOD PRESSURE SYSTOLIC INCREASED [None]
  - CARDIAC ARREST [None]
  - DECREASED APPETITE [None]
  - FATIGUE [None]
  - HAEMODIALYSIS [None]
  - NAUSEA [None]
  - NEPHROTIC SYNDROME [None]
  - RENAL FAILURE [None]
  - RESPIRATORY FAILURE [None]
